FAERS Safety Report 5964221-9 (Version None)
Quarter: 2008Q4

REPORT INFORMATION
  Report Type: 
  Country: None (occurrence: None)
  Receive Date: 20081119
  Receipt Date: 20080926
  Transmission Date: 20090506
  Serious: No
  Sender: FDA-Public Use
  Company Number: WAES 0809USA04641

PATIENT
  Age: 44 Year
  Sex: Male

DRUGS (12)
  1. JANUVIA [Suspect]
     Indication: BLOOD GLUCOSE
     Dosage: 100 MG/DAILY/PO
     Route: 048
     Dates: start: 20080828
  2. COGENTIN [Concomitant]
  3. EFFEXOR [Concomitant]
  4. GEODON [Concomitant]
  5. KLONOPIN [Concomitant]
  6. NEURONTIN [Concomitant]
  7. PROTONIX [Concomitant]
  8. SEROQUEL [Concomitant]
  9. INDOMETHACIN [Concomitant]
  10. LISINOPRIL [Concomitant]
  11. METFORMIN HCL [Concomitant]
  12. SIMVASTATIN [Concomitant]

REACTIONS (1)
  - DRUG SCREEN POSITIVE [None]
